FAERS Safety Report 7811537-7 (Version None)
Quarter: 2011Q4

REPORT INFORMATION
  Report Type: 
  Country: None (occurrence: None)
  Receive Date: 20111013
  Receipt Date: 20111005
  Transmission Date: 20120403
  Serious: Yes (Other)
  Sender: FDA-Public Use
  Company Number: US-JNJFOC-20111003951

PATIENT
  Sex: Female

DRUGS (4)
  1. ORTHO TRI-CYCLEN [Suspect]
     Indication: CONTRACEPTION
     Route: 048
  2. SIMPONI [Concomitant]
     Indication: ANKYLOSING SPONDYLITIS
     Route: 065
     Dates: start: 20101201, end: 20110901
  3. PAXIL [Suspect]
     Indication: PRODUCT USED FOR UNKNOWN INDICATION
     Route: 065
  4. VICOPROFEN [Concomitant]
     Indication: PAIN
     Dosage: PRN
     Route: 065

REACTIONS (3)
  - PREGNANCY ON ORAL CONTRACEPTIVE [None]
  - ABORTION SPONTANEOUS [None]
  - MATERNAL EXPOSURE DURING PREGNANCY [None]
